FAERS Safety Report 8519435-0 (Version None)
Quarter: 2012Q3

REPORT INFORMATION
  Report Type: 
  Country: None (occurrence: None)
  Receive Date: 20120718
  Receipt Date: 20120711
  Transmission Date: 20120928
  Serious: Yes (Death)
  Sender: FDA-Public Use
  Company Number: US-TEVA-347764USA

PATIENT
  Sex: Female

DRUGS (1)
  1. PROAIR HFA [Suspect]

REACTIONS (1)
  - MYOCARDIAL INFARCTION [None]
